FAERS Safety Report 6227941-7 (Version None)
Quarter: 2009Q2

REPORT INFORMATION
  Report Type: 
  Country: None (occurrence: None)
  Receive Date: 20090612
  Receipt Date: 20090605
  Transmission Date: 20091009
  Serious: Yes (Other)
  Sender: FDA-Public Use
  Company Number: US-JNJFOC-20090602950

PATIENT
  Sex: Male

DRUGS (8)
  1. CISAPRIDE [Suspect]
     Route: 048
  2. CISAPRIDE [Suspect]
     Indication: OBSTRUCTION
     Route: 048
  3. GLYCERINE [Concomitant]
     Indication: CONSTIPATION
     Route: 054
  4. ACETAMINOPHEN [Concomitant]
     Indication: PAIN MANAGEMENT
     Route: 054
  5. ZANTAC [Concomitant]
     Indication: GASTROOESOPHAGEAL REFLUX DISEASE
     Route: 065
  6. FERROUS SULFATE TAB [Concomitant]
     Indication: IRON DEFICIENCY
     Route: 065
  7. HYDROCORTISONE [Concomitant]
     Indication: ECZEMA
     Route: 065
  8. REGLAN [Concomitant]
     Indication: GASTROINTESTINAL MOTILITY DISORDER
     Route: 065

REACTIONS (1)
  - ELECTROCARDIOGRAM QT PROLONGED [None]
